FAERS Safety Report 4791857-3 (Version None)
Quarter: 2005Q4

REPORT INFORMATION
  Report Type: 
  Country: None (occurrence: None)
  Receive Date: 20051005
  Receipt Date: 20050927
  Transmission Date: 20060501
  Serious: Yes (Other)
  Sender: FDA-Public Use
  Company Number: 2005134075

PATIENT
  Age: 42 Year
  Sex: Male

DRUGS (4)
  1. LYRICA [Suspect]
     Indication: PAIN
     Dosage: 150 MG (75 MG, 2 IN 1 D), ORAL
     Route: 048
     Dates: start: 20050809, end: 20050830
  2. CONTALGIN (MORPHINE SULFATE) [Concomitant]
  3. GABAPENTIN [Concomitant]
  4. ARTHROTEC [Concomitant]

REACTIONS (6)
  - CONDITION AGGRAVATED [None]
  - HYPERHIDROSIS [None]
  - PAIN [None]
  - SENSORY DISTURBANCE [None]
  - STRESS [None]
  - VISUAL FIELD DEFECT [None]
